FAERS Safety Report 7047515-8 (Version None)
Quarter: 2010Q4

REPORT INFORMATION
  Report Type: 
  Country: None (occurrence: None)
  Receive Date: 20101015
  Receipt Date: 20101004
  Transmission Date: 20110411
  Serious: Yes (Other)
  Sender: FDA-Public Use
  Company Number: RU-PFIZER INC-2010130062

PATIENT
  Age: 30 Year
  Sex: Female

DRUGS (3)
  1. LYRICA [Suspect]
     Indication: PARTIAL SEIZURES
     Dosage: 300 MG, 1X/DAY, BEFORE NIGHT
     Route: 064
     Dates: start: 20090801
  2. KEPPRA [Concomitant]
     Indication: PARTIAL SEIZURES
     Dosage: 250 MG MORNING, 500 MG DAY, 500 MG EVENING - EVERY DAY
     Route: 064
  3. BROMISOVAL/CALCIUM GLUCONATE/CAFFEINE/PAPAVERINE HCL/PHENOBARBITAL [Concomitant]
     Indication: PARTIAL SEIZURES
     Dosage: 1 TABLET THRICE DAILY

REACTIONS (4)
  - ARTIFICIAL RUPTURE OF MEMBRANES [None]
  - DRUG EXPOSURE DURING PREGNANCY [None]
  - GESTATIONAL OEDEMA [None]
  - VAGINAL LACERATION [None]
